FAERS Safety Report 16951552 (Version 2)
Quarter: 2019Q4

REPORT INFORMATION
  Report Type: Report from Study
  Country: US (occurrence: US)
  Receive Date: 20191023
  Receipt Date: 20191104
  Transmission Date: 20200122
  Serious: Yes (Other)
  Sender: FDA-Public Use
  Company Number: US-THERATECHNOLOGIES, INC.-TH-2019-00147

PATIENT

DRUGS (1)
  1. EGRIFTA [Suspect]
     Active Substance: TESAMORELIN
     Dosage: UNK, BID

REACTIONS (3)
  - Surgery [Unknown]
  - Thinking abnormal [Unknown]
  - Accidental overdose [Unknown]

NARRATIVE: CASE EVENT DATE: 20191010
